FAERS Safety Report 16157291 (Version 1)
Quarter: 2019Q2

REPORT INFORMATION
  Report Type: Spontaneous
  Country: JP (occurrence: JP)
  Receive Date: 20190404
  Receipt Date: 20190404
  Transmission Date: 20190711
  Serious: Yes (Hospitalization, Other)
  Sender: FDA-Public Use
  Company Number: JP-ALKEM LABORATORIES LIMITED-JP-ALKEM-2019-02004

PATIENT
  Age: 32 Year
  Sex: Male

DRUGS (3)
  1. MAGNESIUM SULFATE. [Suspect]
     Active Substance: MAGNESIUM SULFATE
     Indication: VENTRICULAR TACHYCARDIA
     Dosage: 2 G, UNK
     Route: 042
  2. LIDOCAINE. [Suspect]
     Active Substance: LIDOCAINE
     Indication: VENTRICULAR TACHYCARDIA
     Dosage: 100 MG, UNK
     Route: 042
  3. CAFFEINE. [Suspect]
     Active Substance: CAFFEINE
     Indication: SUICIDE ATTEMPT
     Dosage: 15.6 G, UNK
     Route: 048

REACTIONS (6)
  - Ventricular tachycardia [Recovered/Resolved]
  - Overdose [Unknown]
  - Drug ineffective [Unknown]
  - Metabolic acidosis [Unknown]
  - Poisoning [Unknown]
  - Generalised tonic-clonic seizure [Unknown]
